APPROVED DRUG PRODUCT: RANOLAZINE
Active Ingredient: RANOLAZINE
Strength: 1GM
Dosage Form/Route: TABLET, EXTENDED RELEASE;ORAL
Application: A210054 | Product #002 | TE Code: AB
Applicant: AJANTA PHARMA LTD
Approved: May 28, 2019 | RLD: No | RS: No | Type: RX